FAERS Safety Report 18088043 (Version 5)
Quarter: 2020Q4

REPORT INFORMATION
  Report Type: Spontaneous
  Country: US (occurrence: US)
  Receive Date: 20200729
  Receipt Date: 20201009
  Transmission Date: 20210113
  Serious: Yes (Other)
  Sender: FDA-Public Use
  Company Number: US-LEXICON PHARMACEUTICALS, INC-20-1606-00553

PATIENT
  Age: 67 Year
  Sex: Male

DRUGS (3)
  1. SANDOSTATIN [Concomitant]
     Active Substance: OCTREOTIDE ACETATE
  2. XERMELO [Suspect]
     Active Substance: TELOTRISTAT ETHYL
     Route: 048
     Dates: start: 20200714
  3. XERMELO [Suspect]
     Active Substance: TELOTRISTAT ETHYL
     Indication: CARCINOID SYNDROME
     Dates: start: 20200618

REACTIONS (6)
  - Asthenia [Recovered/Resolved]
  - Flatulence [Recovering/Resolving]
  - Urinary retention [Recovered/Resolved]
  - Disease progression [Unknown]
  - Headache [Recovered/Resolved]
  - Product dose omission issue [Recovered/Resolved]
